FAERS Safety Report 9547138 (Version 4)
Quarter: 2013Q4

REPORT INFORMATION
  Report Type: Spontaneous
  Country: BR (occurrence: BR)
  Receive Date: 20130924
  Receipt Date: 20131122
  Transmission Date: 20140711
  Serious: Yes (Death, Hospitalization, Other)
  Sender: FDA-Public Use
  Company Number: PHHY2013BR105770

PATIENT
  Age: 58 Year
  Sex: Female
  Weight: 50 kg

DRUGS (1)
  1. FORASEQ [Suspect]
     Indication: EMPHYSEMA
     Dosage: 2 INHALATION DAILY
     Dates: start: 201308, end: 20130824

REACTIONS (6)
  - Respiratory failure [Fatal]
  - Pneumonia [Fatal]
  - Asthma [Fatal]
  - Urinary tract infection [Not Recovered/Not Resolved]
  - Emphysema [Not Recovered/Not Resolved]
  - Angina pectoris [Not Recovered/Not Resolved]
